FAERS Safety Report 8218004-X (Version None)
Quarter: 2012Q1

REPORT INFORMATION
  Report Type: 
  Country: None (occurrence: None)
  Receive Date: 20120319
  Receipt Date: 20120314
  Transmission Date: 20120608
  Serious: Yes (Other)
  Sender: FDA-Public Use
  Company Number: US-PFIZER INC-2012067994

PATIENT
  Sex: Male
  Weight: 127 kg

DRUGS (13)
  1. CYMBALTA [Concomitant]
     Indication: DEPRESSION
     Dosage: 60 MG, DAILY
  2. ISOSORBIDE [Concomitant]
     Dosage: 30 MG, DAILY
  3. TAMSULOSIN HYDROCHLORIDE [Concomitant]
     Dosage: 0.4 MG, DAILY
  4. ZOCOR [Concomitant]
     Indication: HYPERTENSION
  5. PREVACID [Concomitant]
     Indication: GASTROOESOPHAGEAL REFLUX DISEASE
     Dosage: 30 MG, 2X/DAY
  6. XANAX [Suspect]
     Indication: DEPRESSION
  7. CYMBALTA [Concomitant]
     Indication: PAIN
  8. XANAX [Suspect]
     Indication: ANXIETY
  9. METOPROLOL [Concomitant]
     Indication: CARDIAC DISORDER
     Dosage: 50 MG, DAILY
  10. PLAVIX [Concomitant]
     Dosage: UNK
  11. ZOCOR [Concomitant]
     Indication: BLOOD CHOLESTEROL INCREASED
     Dosage: 20 MG, DAILY
  12. XANAX [Suspect]
     Indication: PANIC ATTACK
     Dosage: 1 MG, 3X/DAY
     Route: 048
     Dates: start: 19950501
  13. ACETYLSALICYLIC ACID [Concomitant]
     Indication: ANTICOAGULANT THERAPY
     Dosage: 325 MG, DAILY

REACTIONS (1)
  - MYOCARDIAL INFARCTION [None]
